FAERS Safety Report 14712469 (Version 1)
Quarter: 2018Q2

REPORT INFORMATION
  Report Type: Report from Study
  Country: CN (occurrence: CN)
  Receive Date: 20180404
  Receipt Date: 20180404
  Transmission Date: 20180711
  Serious: Yes (Other)
  Sender: FDA-Public Use
  Company Number: CN-ROCHE-2097764

PATIENT
  Sex: Male
  Weight: 73 kg

DRUGS (1)
  1. AVASTIN [Suspect]
     Active Substance: BEVACIZUMAB
     Indication: COLORECTAL CANCER
     Route: 041
     Dates: start: 20170912

REACTIONS (6)
  - Gait disturbance [Unknown]
  - Arrhythmia [Unknown]
  - Blood pressure increased [Unknown]
  - Asthenia [Unknown]
  - Cardiac disorder [Unknown]
  - Coagulation test abnormal [Unknown]
